FAERS Safety Report 5800518-0 (Version None)
Quarter: 2008Q3

REPORT INFORMATION
  Report Type: 
  Country: None (occurrence: None)
  Receive Date: 20080703
  Receipt Date: 20080624
  Transmission Date: 20090109
  Serious: Yes (Other)
  Sender: FDA-Public Use
  Company Number: IN-BAXTER-2008BH003975

PATIENT
  Age: 60 Year
  Sex: Female
  Weight: 55 kg

DRUGS (3)
  1. DIANEAL [Suspect]
     Indication: PERITONEAL DIALYSIS
     Dosage: DOSE UNIT:UNKNOWN
     Route: 033
     Dates: start: 20080101
  2. DIANEAL [Suspect]
     Route: 033
     Dates: start: 20080401
  3. DIANEAL [Suspect]
     Route: 033
     Dates: start: 20080401

REACTIONS (3)
  - CATHETER REMOVAL [None]
  - FUNGAL PERITONITIS [None]
  - PYREXIA [None]
